FAERS Safety Report 6210847-7 (Version None)
Quarter: 2009Q2

REPORT INFORMATION
  Report Type: 
  Country: None (occurrence: None)
  Receive Date: 20090601
  Receipt Date: 20090526
  Transmission Date: 20091009
  Serious: Yes (Life-Threatening, Hospitalization, Other)
  Sender: FDA-Public Use
  Company Number: PHHY2009BR20428

PATIENT
  Sex: Male

DRUGS (8)
  1. LEPONEX [Suspect]
     Dosage: 1 DF, UNK
     Dates: start: 20090401
  2. LEPONEX [Suspect]
     Dosage: 0.5 DF, UNK
  3. GINSENG EXTRACT [Concomitant]
  4. DELTONY [Concomitant]
  5. BETAHISTINE HYDROCHLORIDE [Concomitant]
     Indication: BALANCE DISORDER
  6. BERTA 124 [Concomitant]
  7. RYTMONORM [Concomitant]
  8. MAGNESIUM HYDROXIDE TAB [Concomitant]

REACTIONS (8)
  - AKATHISIA [None]
  - APPARENT DEATH [None]
  - CONDITION AGGRAVATED [None]
  - DYSARTHRIA [None]
  - MEMORY IMPAIRMENT [None]
  - MOVEMENT DISORDER [None]
  - SENSORY DISTURBANCE [None]
  - TONGUE DISORDER [None]
